FAERS Safety Report 7547654-9 (Version None)
Quarter: 2011Q2

REPORT INFORMATION
  Report Type: 
  Country: None (occurrence: None)
  Receive Date: 20110614
  Receipt Date: 20110609
  Transmission Date: 20111010
  Serious: Yes (Other)
  Sender: FDA-Public Use
  Company Number: US-MERCK-1103USA03639

PATIENT
  Age: 32 Year
  Sex: Female
  Weight: 69 kg

DRUGS (9)
  1. ALOXI [Concomitant]
     Indication: PREMEDICATION
     Route: 042
  2. PEPCID [Concomitant]
     Indication: CHEMOTHERAPY
     Route: 042
  3. ALOXI [Concomitant]
     Indication: CHEMOTHERAPY
     Route: 042
  4. BENADRYL [Concomitant]
     Indication: CHEMOTHERAPY
     Route: 042
  5. IVEMEND [Suspect]
     Indication: PROPHYLAXIS OF NAUSEA AND VOMITING
     Route: 041
     Dates: start: 20110322, end: 20110322
  6. DEXAMETHASONE [Concomitant]
     Indication: PREMEDICATION
     Route: 042
  7. PEPCID [Concomitant]
     Indication: PREMEDICATION
     Route: 042
  8. BENADRYL [Concomitant]
     Indication: PREMEDICATION
     Route: 042
  9. DEXAMETHASONE [Concomitant]
     Indication: CHEMOTHERAPY
     Route: 042

REACTIONS (1)
  - ANAPHYLACTIC SHOCK [None]
